FAERS Safety Report 7187676-3 (Version None)
Quarter: 2010Q4

REPORT INFORMATION
  Report Type: 
  Country: None (occurrence: None)
  Receive Date: 20101222
  Receipt Date: 20100702
  Transmission Date: 20110411
  Serious: No
  Sender: FDA-Public Use
  Company Number: US-AMGEN-TCS422138

PATIENT

DRUGS (2)
  1. ENBREL [Suspect]
     Indication: PSORIATIC ARTHROPATHY
     Dosage: UNK UNK, UNK
     Dates: start: 20100617
  2. ENBREL [Suspect]
     Indication: PSORIASIS

REACTIONS (3)
  - COUGH [None]
  - MUSCULAR WEAKNESS [None]
  - TREMOR [None]
